FAERS Safety Report 24377109 (Version 1)
Quarter: 2024Q3

REPORT INFORMATION
  Report Type: Report from Study
  Country: US (occurrence: US)
  Receive Date: 20240930
  Receipt Date: 20240930
  Transmission Date: 20241016
  Serious: Yes (Other)
  Sender: ABBVIE
  Company Number: US-ABBVIE-5408863

PATIENT
  Age: 85 Year
  Sex: Female
  Weight: 54 kg

DRUGS (10)
  1. SKYRIZI [Suspect]
     Active Substance: RISANKIZUMAB-RZAA
     Indication: Crohn^s disease
     Dosage: 2.4 MG
     Route: 058
     Dates: start: 202212, end: 202310
  2. SKYRIZI [Suspect]
     Active Substance: RISANKIZUMAB-RZAA
     Dosage: 2.4 MG
     Route: 058
  3. SKYRIZI [Suspect]
     Active Substance: RISANKIZUMAB-RZAA
     Indication: Crohn^s disease
     Dosage: 3 INFUSIONS
     Route: 042
     Dates: start: 20220914
  4. FOLIC ACID [Concomitant]
     Active Substance: FOLIC ACID
     Indication: Product used for unknown indication
     Dosage: PILL?FREQUENCY: 1
     Route: 048
     Dates: start: 2015
  5. VITAMIN B6 [Concomitant]
     Active Substance: PYRIDOXINE HYDROCHLORIDE
     Indication: Product used for unknown indication
  6. VITAMIN B12 [Concomitant]
     Active Substance: CYANOCOBALAMIN
     Indication: Product used for unknown indication
  7. VITAMIN D [Concomitant]
     Active Substance: VITAMIN D NOS
     Indication: Product used for unknown indication
  8. VITAMIN C [Concomitant]
     Active Substance: ASCORBIC ACID
     Indication: Product used for unknown indication
  9. THYRONINE [Concomitant]
     Indication: Product used for unknown indication
     Dosage: 75 MCG PILL
     Route: 048
     Dates: start: 1989
  10. CHOLESTYRAMINE [Concomitant]
     Active Substance: CHOLESTYRAMINE
     Indication: Product used for unknown indication
     Dosage: 1/2 TABLE SPOON PER DAY

REACTIONS (7)
  - Cholecystectomy [Unknown]
  - Malaise [Unknown]
  - Diarrhoea [Recovered/Resolved]
  - Rash papular [Recovering/Resolving]
  - Drug ineffective [Unknown]
  - Diarrhoea [Recovered/Resolved]
  - Diarrhoea [Recovering/Resolving]

NARRATIVE: CASE EVENT DATE: 20230401
